FAERS Safety Report 6687373-4 (Version None)
Quarter: 2010Q2

REPORT INFORMATION
  Report Type: 
  Country: None (occurrence: None)
  Receive Date: 20100415
  Receipt Date: 20100331
  Transmission Date: 20101027
  Serious: Yes (Hospitalization)
  Sender: FDA-Public Use
  Company Number: 009835

PATIENT
  Sex: Male
  Weight: 69 kg

DRUGS (1)
  1. CERTOLIZUMAB PEGOL (CERTOLIZUMAB PEGOL) [Suspect]
     Indication: CROHN'S DISEASE
     Dosage: (400 MG 1X/2 WEEKS, CDP870-085 SUBCUTANEOUS), (400 MG 1X/2 WEEKS SUBCUTANEOUS)
     Route: 058

REACTIONS (1)
  - PANCREATITIS [None]
